FAERS Safety Report 9003410 (Version 2)
Quarter: 2013Q1

REPORT INFORMATION
  Report Type: Spontaneous
  Country: US (occurrence: US)
  Receive Date: 20130108
  Receipt Date: 20130116
  Transmission Date: 20140127
  Serious: Yes (Death, Hospitalization)
  Sender: FDA-Public Use
  Company Number: US-GLAXOSMITHKLINE-A1006122A

PATIENT
  Age: 73 Year
  Sex: Female

DRUGS (1)
  1. FLOLAN [Suspect]
     Indication: PRODUCT USED FOR UNKNOWN INDICATION
     Dosage: 53NGKM CONTINUOUS
     Route: 065
     Dates: start: 20080615

REACTIONS (5)
  - Renal failure [Unknown]
  - Death [Fatal]
  - Chest pain [Unknown]
  - Nausea [Unknown]
  - Wheezing [Unknown]
